FAERS Safety Report 21420194 (Version 1)
Quarter: 2022Q4

REPORT INFORMATION
  Report Type: Spontaneous
  Country: US (occurrence: None)
  Receive Date: 20221007
  Receipt Date: 20221007
  Transmission Date: 20230113
  Serious: No
  Sender: FDA-Public Use
  Company Number: 2022A328076

PATIENT
  Age: 71 Year
  Sex: Female

DRUGS (1)
  1. SYMBICORT [Suspect]
     Active Substance: BUDESONIDE\FORMOTEROL FUMARATE DIHYDRATE
     Indication: Asthma
     Dosage: 160/4.5 MCG, ONE PUFF TWICE A DAY, ALTERNATED AT TIMES WITH OFF LABEL FREQUENCY OF ONE PUFF DAILY...
     Route: 055

REACTIONS (5)
  - Dental caries [Not Recovered/Not Resolved]
  - Gingival recession [Not Recovered/Not Resolved]
  - Loose tooth [Not Recovered/Not Resolved]
  - Bone density decreased [Not Recovered/Not Resolved]
  - Off label use [Recovered/Resolved]

NARRATIVE: CASE EVENT DATE: 20220101
